FAERS Safety Report 4641510-1 (Version None)
Quarter: 2005Q2

REPORT INFORMATION
  Report Type: 
  Country: None (occurrence: None)
  Receive Date: 20050421
  Receipt Date: 20050415
  Transmission Date: 20051028
  Serious: Yes (Other)
  Sender: FDA-Public Use
  Company Number: NL-GLAXOSMITHKLINE-B0378589A

PATIENT
  Sex: Male

DRUGS (1)
  1. DUTASTERIDE [Suspect]

REACTIONS (3)
  - ANXIETY [None]
  - DYSPNOEA [None]
  - RESPIRATORY DISTRESS [None]
